FAERS Safety Report 18191832 (Version 4)
Quarter: 2020Q4

REPORT INFORMATION
  Report Type: Report from Study
  Country: ES (occurrence: ES)
  Receive Date: 20200825
  Receipt Date: 20201208
  Transmission Date: 20210113
  Serious: Yes (Hospitalization)
  Sender: FDA-Public Use
  Company Number: NVSC2020ES225607

PATIENT
  Age: 52 Year
  Sex: Female
  Weight: 58 kg

DRUGS (3)
  1. PLACEBO [Suspect]
     Active Substance: UNSPECIFIED INGREDIENT
     Indication: MULTIPLE SCLEROSIS RELAPSE
     Dosage: UNK
     Route: 058
     Dates: start: 20190528
  2. OFATUMUMAB [Suspect]
     Active Substance: OFATUMUMAB
     Dosage: 20 MG, QMO
     Route: 058
     Dates: start: 20200909
  3. OFATUMUMAB [Suspect]
     Active Substance: OFATUMUMAB
     Indication: MULTIPLE SCLEROSIS RELAPSE
     Dosage: 20 MG, Q4W
     Route: 058
     Dates: start: 20190522, end: 20200715

REACTIONS (1)
  - Cholecystitis chronic [Recovered/Resolved]

NARRATIVE: CASE EVENT DATE: 202002
